FAERS Safety Report 18311918 (Version 1)
Quarter: 2020Q3

REPORT INFORMATION
  Report Type: Spontaneous
  Country: CA (occurrence: CA)
  Receive Date: 20200925
  Receipt Date: 20200925
  Transmission Date: 20201103
  Serious: Yes (Life-Threatening, Other)
  Sender: FDA-Public Use
  Company Number: CA-ACCORD-202535

PATIENT
  Age: 86 Year
  Sex: Male
  Weight: 66 kg

DRUGS (11)
  1. PREDNISONE. [Concomitant]
     Active Substance: PREDNISONE
  2. ELIQUIS [Concomitant]
     Active Substance: APIXABAN
  3. BENZYDAMINE [Concomitant]
     Active Substance: BENZYDAMINE
     Route: 002
  4. CALCIUM CARBONATE/CALCIUM LACTOGLUCONATE [Concomitant]
     Active Substance: CALCIUM CARBONATE\CALCIUM LACTATE GLUCONATE
  5. METHOTREXATE. [Suspect]
     Active Substance: METHOTREXATE
     Indication: GIANT CELL ARTERITIS
     Dosage: 1 EVERY 1 WEEKS
     Route: 048
  6. COLECALCIFEROL [Concomitant]
     Active Substance: CHOLECALCIFEROL
     Route: 048
  7. ATORVASTATIN [Concomitant]
     Active Substance: ATORVASTATIN
  8. PANTOPRAZOLE [Concomitant]
     Active Substance: PANTOPRAZOLE
  9. FOLIC ACID. [Concomitant]
     Active Substance: FOLIC ACID
  10. BRILINTA [Concomitant]
     Active Substance: TICAGRELOR
  11. SENNA ALEXANDRINA [Concomitant]
     Active Substance: SENNA LEAF

REACTIONS (3)
  - Bone marrow failure [Not Recovered/Not Resolved]
  - Mucosal haemorrhage [Not Recovered/Not Resolved]
  - Pancytopenia [Not Recovered/Not Resolved]
